FAERS Safety Report 8133912-6 (Version None)
Quarter: 2012Q1

REPORT INFORMATION
  Report Type: 
  Country: None (occurrence: None)
  Receive Date: 20120213
  Receipt Date: 20120207
  Transmission Date: 20120608
  Serious: Yes (Other)
  Sender: FDA-Public Use
  Company Number: DE-AMGEN-DEUSP2012002175

PATIENT
  Age: 97 Year
  Sex: Female

DRUGS (4)
  1. VITAMIN D [Concomitant]
     Dosage: UNK
  2. CALCIUM [Concomitant]
     Dosage: UNK
  3. BONIVA [Concomitant]
     Dosage: 150 MG, QMO
     Route: 042
     Dates: start: 20080603, end: 20110411
  4. PROLIA [Suspect]
     Indication: OSTEOPOROSIS
     Dosage: 60 MG, UNK
     Dates: start: 20110429

REACTIONS (2)
  - DRUG INEFFECTIVE [None]
  - SPINAL FRACTURE [None]
